FAERS Safety Report 8275224-6 (Version None)
Quarter: 2012Q2

REPORT INFORMATION
  Report Type: 
  Country: None (occurrence: None)
  Receive Date: 20120411
  Receipt Date: 20120402
  Transmission Date: 20120825
  Serious: Yes (Hospitalization)
  Sender: FDA-Public Use
  Company Number: US-GILEAD-2012-0053053

PATIENT
  Age: 27 Year
  Sex: Female

DRUGS (6)
  1. INTELENCE [Concomitant]
     Indication: HIV INFECTION
     Dosage: 400 MG, QD
     Route: 048
     Dates: start: 20111025, end: 20111107
  2. PREZISTA [Concomitant]
     Indication: HIV INFECTION
     Dosage: 800 MG, QD
     Route: 048
     Dates: start: 20110831, end: 20111002
  3. EPZICOM [Concomitant]
     Indication: HIV INFECTION
     Dosage: 1 DF, QD
     Route: 048
     Dates: start: 20111025
  4. EMTRICITABINE AND TENOFOVIR DISOPROXIL FUMARATE [Suspect]
     Indication: HIV INFECTION
     Dosage: 1 DF, QD
     Route: 048
     Dates: start: 20110831, end: 20111002
  5. INTELENCE [Concomitant]
     Dosage: 400 MG, BID
     Route: 048
     Dates: start: 20111108
  6. NORVIR [Concomitant]
     Indication: HIV INFECTION
     Dosage: 100 MG, QD
     Route: 048
     Dates: start: 20110831, end: 20111002

REACTIONS (1)
  - PREMATURE DELIVERY [None]
